FAERS Safety Report 19760639 (Version 1)
Quarter: 2021Q3

REPORT INFORMATION
  Report Type: Spontaneous
  Country: US (occurrence: US)
  Receive Date: 20210825
  Receipt Date: 20210825
  Transmission Date: 20211014
  Serious: Yes (Death)
  Sender: FDA-Public Use
  Company Number: None

PATIENT
  Age: 71 Year
  Sex: Female

DRUGS (1)
  1. TADALAFIL 20MG TAB 60/BO (DR. REDDY) : [Suspect]
     Active Substance: TADALAFIL
     Indication: PULMONARY HYPERTENSION
     Route: 048
     Dates: start: 20200210, end: 20210818

REACTIONS (4)
  - Syncope [None]
  - Hypoxia [None]
  - Troponin increased [None]
  - Dyspnoea [None]

NARRATIVE: CASE EVENT DATE: 20210818
